FAERS Safety Report 7764628-3 (Version None)
Quarter: 2011Q3

REPORT INFORMATION
  Report Type: 
  Country: None (occurrence: None)
  Receive Date: 20110921
  Receipt Date: 20110913
  Transmission Date: 20111222
  Serious: Yes (Other)
  Sender: FDA-Public Use
  Company Number: PHHY2011US81874

PATIENT
  Age: 25 Year
  Sex: Female

DRUGS (6)
  1. CLOZAPINE [Suspect]
     Indication: CATATONIA
     Dosage: 300 MG
  2. LORAZEPAM [Concomitant]
     Indication: CATATONIA
     Dosage: 1.5 MG, TID
  3. ARIPIPRAZOLE [Concomitant]
     Dosage: 30 MG DAILY
  4. LORAZEPAM [Concomitant]
     Indication: PSYCHOTIC DISORDER
     Dosage: 0.5 MG, BID
  5. FLUVOXAMINE MALEATE [Concomitant]
     Dosage: 125 MG DAILY
  6. CLOZAPINE [Suspect]
     Indication: PSYCHOTIC DISORDER
     Dosage: 500 MG, BID

REACTIONS (15)
  - HAEMANGIOMA [None]
  - POSTURE ABNORMAL [None]
  - SPEECH DISORDER [None]
  - MUSCULOSKELETAL PAIN [None]
  - CERVICAL SPINAL STENOSIS [None]
  - INTERVERTEBRAL DISC DISPLACEMENT [None]
  - ENCEPHALOPATHY [None]
  - TACHYCARDIA [None]
  - HAEMATOCRIT DECREASED [None]
  - OBSESSIVE-COMPULSIVE DISORDER [None]
  - BLOOD ALBUMIN DECREASED [None]
  - KYPHOSIS [None]
  - HYPOKINESIA [None]
  - HAEMOGLOBIN DECREASED [None]
  - NECK PAIN [None]
